FAERS Safety Report 11167473 (Version 3)
Quarter: 2015Q4

REPORT INFORMATION
  Report Type: Spontaneous
  Country: US (occurrence: US)
  Receive Date: 20150605
  Receipt Date: 20151109
  Transmission Date: 20160304
  Serious: Yes (Hospitalization, Other)
  Sender: FDA-Public Use
  Company Number: US-PFIZER INC-2015188327

PATIENT
  Age: 55 Year
  Sex: Female

DRUGS (21)
  1. PHENOBARB [Concomitant]
     Active Substance: PHENOBARBITAL SODIUM
     Dosage: UNK
     Dates: start: 1990
  2. FOSAMAX [Concomitant]
     Active Substance: ALENDRONATE SODIUM
     Dosage: 35 MG, WEEKLY
     Route: 048
  3. LETAIRIS [Concomitant]
     Active Substance: AMBRISENTAN
     Indication: PULMONARY ARTERIAL HYPERTENSION
     Dosage: 10 MG, 1X/DAY
     Route: 048
  4. DELTASONE [Concomitant]
     Active Substance: PREDNISONE
     Dosage: 3 MG, DAILY
     Route: 048
  5. REVATIO [Suspect]
     Active Substance: SILDENAFIL CITRATE
     Indication: PULMONARY ARTERIAL HYPERTENSION
     Dosage: 100 MG, 3X/DAY
     Route: 048
     Dates: start: 2001
  6. CELLCEPT [Concomitant]
     Active Substance: MYCOPHENOLATE MOFETIL\MYCOPHENOLATE MOFETIL HYDROCHLORIDE
     Indication: SYSTEMIC LUPUS ERYTHEMATOSUS
     Dosage: 500 MG, 2X/DAY
     Route: 048
  7. PLAQUENIL [Concomitant]
     Active Substance: HYDROXYCHLOROQUINE SULFATE
     Indication: SYSTEMIC LUPUS ERYTHEMATOSUS
     Dosage: 500 MG, 2X/DAY
     Route: 048
  8. LISINOPRIL. [Concomitant]
     Active Substance: LISINOPRIL
     Dosage: 2.5 MG, DAILY
     Route: 048
  9. DESOWEN [Concomitant]
     Active Substance: DESONIDE
     Dosage: 0.05 %, 2X/DAY
     Route: 061
  10. REVATIO [Suspect]
     Active Substance: SILDENAFIL CITRATE
     Dosage: 20 MG TABLET, TAKE 5 TABLETS PO TID
     Route: 048
  11. PREDNISONE. [Concomitant]
     Active Substance: PREDNISONE
     Indication: SYSTEMIC LUPUS ERYTHEMATOSUS
     Dosage: 3 MG, 1X/DAY
     Dates: start: 1989
  12. PLAQUENIL [Concomitant]
     Active Substance: HYDROXYCHLOROQUINE SULFATE
     Dosage: 200 MG, 2X/DAY
     Route: 048
  13. CAUMADIN [Concomitant]
     Active Substance: WARFARIN SODIUM
     Dosage: TAKE 15 MG 5 DAYS PER WEEK AND 20 MG 2 DAYS PER WEEK (WEDNESDAY AND SUNDAY) OR AS DIRECT
  14. ROXICODONE [Concomitant]
     Active Substance: OXYCODONE HYDROCHLORIDE
     Indication: PAIN
     Dosage: UNK, AS NEEDED (TAKE 1-2 TABLETS (5-10MG) BY MOUTH EVERY 6 HOURS AS NEEDED)
     Route: 048
  15. LUMINAL [Concomitant]
     Active Substance: PHENOBARBITAL SODIUM
     Dosage: 64.8 MG (AT BED TIME)
     Route: 048
  16. DESYREL [Concomitant]
     Active Substance: TRAZODONE HYDROCHLORIDE
     Dosage: 100 MG (AT BED TIME)
     Route: 048
  17. LASIX [Concomitant]
     Active Substance: FUROSEMIDE
     Dosage: 20 MG, DAILY
     Route: 048
  18. DELTASONE [Concomitant]
     Active Substance: PREDNISONE
     Dosage: 4 MG, DAILY
     Route: 048
  19. LUMINAL [Concomitant]
     Active Substance: PHENOBARBITAL SODIUM
     Dosage: 32.4 MG (EVERY MORNING)
     Route: 048
  20. KLONOPIN [Concomitant]
     Active Substance: CLONAZEPAM
     Dosage: 1 MG (AT BED TIME)
     Route: 048
  21. FOLVITE [Concomitant]
     Active Substance: FOLIC ACID
     Dosage: 3 MG DAILY, (1 MG TABLET, TAKE 3 TABLETS BY MOUTH DAILY) MOUTH DAILY)
     Route: 048

REACTIONS (3)
  - Disease progression [Recovered/Resolved]
  - Product use issue [Unknown]
  - Osteonecrosis [Recovered/Resolved]
